FAERS Safety Report 8574014-4 (Version None)
Quarter: 2012Q3

REPORT INFORMATION
  Report Type: 
  Country: None (occurrence: None)
  Receive Date: 20120806
  Receipt Date: 20120724
  Transmission Date: 20120928
  Serious: Yes (Hospitalization, Other)
  Sender: FDA-Public Use
  Company Number: FR-ELI_LILLY_AND_COMPANY-FR201207007251

PATIENT
  Sex: Female

DRUGS (5)
  1. PRAVASTATIN [Concomitant]
     Dosage: 1 DF, UNKNOWN
  2. ZYPREXA [Suspect]
     Dosage: 1 DF, UNKNOWN
     Dates: start: 20080517
  3. LANTUS [Concomitant]
     Dosage: 1 DF, UNKNOWN
  4. MODOPAR [Concomitant]
     Dosage: 1 DF, UNKNOWN
  5. PERINDOPRIL ERBUMINE [Concomitant]
     Dosage: 1 DF, UNKNOWN

REACTIONS (5)
  - PULMONARY EMBOLISM [None]
  - DEEP VEIN THROMBOSIS [None]
  - PULMONARY SEPSIS [None]
  - TUBULOINTERSTITIAL NEPHRITIS [None]
  - PLEURAL EFFUSION [None]
